FAERS Safety Report 9501742 (Version 1)
Quarter: 2013Q1

REPORT INFORMATION
  Report Type: Spontaneous
  Country: US (occurrence: None)
  Receive Date: 20130107
  Receipt Date: 20130107
  Transmission Date: 20140127
  Serious: Yes (Disabling, Other)
  Sender: FDA-Public Use
  Company Number: PHEH2012US018785

PATIENT
  Age: 60 Year
  Sex: Female
  Weight: 59 kg

DRUGS (4)
  1. GILENYA (FTY) CAPSULE [Suspect]
     Route: 048
  2. FAMPRIDINE [Suspect]
     Route: 048
     Dates: start: 2010
  3. ANTIHYPERTENSIVE DRUGS (NO INGREDIENTS/SUBSTANCES) [Concomitant]
  4. THYROID THERAPY (NO INGREDIENTS/SUBSTANCES) [Concomitant]

REACTIONS (2)
  - Clostridial infection [None]
  - Dizziness [None]
